FAERS Safety Report 14606935 (Version 1)
Quarter: 2018Q1

REPORT INFORMATION
  Report Type: Spontaneous
  Country: US (occurrence: US)
  Receive Date: 20180307
  Receipt Date: 20180307
  Transmission Date: 20180509
  Serious: No
  Sender: FDA-Public Use
  Company Number: US-SHIRE-US201808218

PATIENT

DRUGS (1)
  1. XIIDRA [Suspect]
     Active Substance: LIFITEGRAST
     Indication: PRODUCT USED FOR UNKNOWN INDICATION
     Route: 047

REACTIONS (7)
  - Sinus pain [Unknown]
  - Drug ineffective [Unknown]
  - Instillation site pruritus [Unknown]
  - Instillation site pain [Unknown]
  - Headache [Unknown]
  - Instillation site lacrimation [Unknown]
  - Photosensitivity reaction [Unknown]
